FAERS Safety Report 14090511 (Version 5)
Quarter: 2019Q2

REPORT INFORMATION
  Report Type: Spontaneous
  Country: JP (occurrence: JP)
  Receive Date: 20171015
  Receipt Date: 20190529
  Transmission Date: 20190711
  Serious: Yes (Hospitalization)
  Sender: FDA-Public Use
  Company Number: JP-BRISTOL-MYERS SQUIBB COMPANY-BMS-2017-092153

PATIENT
  Age: 50 Year
  Sex: Male

DRUGS (2)
  1. OPDIVO [Suspect]
     Active Substance: NIVOLUMAB
     Indication: NON-SMALL CELL LUNG CANCER RECURRENT
     Dosage: 180 MILLIGRAM, Q2WK
     Route: 041
     Dates: start: 20161026, end: 20170119
  2. EDOXABAN TOSILATE [Concomitant]
     Active Substance: EDOXABAN TOSYLATE
     Indication: VENOUS THROMBOSIS
     Dosage: UNK
     Route: 048

REACTIONS (3)
  - Influenza A virus test positive [Recovered/Resolved]
  - Secondary adrenocortical insufficiency [Unknown]
  - Hypopituitarism [Recovering/Resolving]

NARRATIVE: CASE EVENT DATE: 2017
